FAERS Safety Report 7928850-5 (Version None)
Quarter: 2011Q4

REPORT INFORMATION
  Report Type: 
  Country: None (occurrence: None)
  Receive Date: 20111118
  Receipt Date: 20111103
  Transmission Date: 20120403
  Serious: Yes (Hospitalization, Other)
  Sender: FDA-Public Use
  Company Number: AU-ROCHE-1011767

PATIENT
  Sex: Female

DRUGS (1)
  1. LUCENTIS [Suspect]
     Indication: AGE-RELATED MACULAR DEGENERATION
     Route: 050
     Dates: start: 20101201

REACTIONS (5)
  - CYSTITIS [None]
  - FLUID RETENTION [None]
  - CARDIOMYOPATHY [None]
  - WEIGHT DECREASED [None]
  - DYSPNOEA [None]
